FAERS Safety Report 5154908-2 (Version None)
Quarter: 2006Q4

REPORT INFORMATION
  Report Type: 
  Country: None (occurrence: None)
  Receive Date: 20061121
  Receipt Date: 20061107
  Transmission Date: 20070319
  Serious: Yes (Other)
  Sender: FDA-Public Use
  Company Number: 2006SE05984

PATIENT
  Age: 60 Year
  Sex: Male

DRUGS (14)
  1. ATENOLOL [Suspect]
     Indication: HYPERTENSION
     Route: 048
     Dates: start: 20030101
  2. VIAGRA [Interacting]
     Indication: ERECTILE DYSFUNCTION
     Route: 048
     Dates: start: 20010101, end: 20040101
  3. ANTIHYPERTENSIVES [Interacting]
     Indication: BLOOD PRESSURE
     Route: 048
  4. HYDRALAZINE HCL [Interacting]
  5. TRIAMTERENE AND HYDROCHLOROTHIAZIDE [Interacting]
  6. LISINOPRIL [Interacting]
     Indication: HYPERTENSION
     Route: 048
     Dates: start: 20030101
  7. METOPROLOL [Interacting]
     Route: 048
  8. NIFEDIPINE [Interacting]
     Indication: HYPERTENSION
     Route: 048
     Dates: start: 20030101
  9. TADALAFIL [Interacting]
  10. LEVITRA [Interacting]
  11. ZOCOR [Concomitant]
     Route: 048
  12. DYAZIDE [Concomitant]
     Route: 048
  13. METOPROLOL [Concomitant]
  14. NIFEDIPINE [Concomitant]

REACTIONS (3)
  - DRUG INEFFECTIVE [None]
  - DRUG INTERACTION [None]
  - HYPERTENSION [None]
